FAERS Safety Report 14592762 (Version 1)
Quarter: 2018Q1

REPORT INFORMATION
  Report Type: Spontaneous
  Country: US (occurrence: US)
  Receive Date: 20180302
  Receipt Date: 20180302
  Transmission Date: 20180509
  Serious: No
  Sender: FDA-Public Use
  Company Number: US-BAYER-2018-036828

PATIENT
  Age: 32 Year
  Sex: Male
  Weight: 129.98 kg

DRUGS (2)
  1. MIRALAX [Suspect]
     Active Substance: POLYETHYLENE GLYCOL 3350
     Indication: RECTAL HAEMORRHAGE
     Dosage: 1 DF, QD
     Route: 048
     Dates: start: 20180220
  2. CITRUCEL [Concomitant]
     Active Substance: METHYLCELLULOSE (4000 MPA.S)

REACTIONS (7)
  - Product taste abnormal [None]
  - Product use issue [Unknown]
  - Poor quality drug administered [Unknown]
  - Off label use [Unknown]
  - Circumstance or information capable of leading to medication error [None]
  - Product use in unapproved indication [Unknown]
  - Product prescribing issue [Unknown]

NARRATIVE: CASE EVENT DATE: 20180220
